FAERS Safety Report 7314298-3 (Version None)
Quarter: 2011Q1

REPORT INFORMATION
  Report Type: 
  Country: None (occurrence: None)
  Receive Date: 20110225
  Receipt Date: 20100802
  Transmission Date: 20110831
  Serious: No
  Sender: FDA-Public Use
  Company Number: US-MYLANLABS-2010S1012462

PATIENT
  Age: 22 Year
  Sex: Male

DRUGS (3)
  1. IMITREX [Concomitant]
  2. AMNESTEEM [Suspect]
     Indication: ACNE CYSTIC
     Route: 048
     Dates: end: 20100709
  3. CLARAVIS [Suspect]
     Indication: ACNE CYSTIC
     Route: 048
     Dates: start: 20100129

REACTIONS (2)
  - MIGRAINE [None]
  - HEADACHE [None]
